FAERS Safety Report 17336042 (Version 1)
Quarter: 2020Q1

REPORT INFORMATION
  Report Type: Spontaneous
  Country: FR (occurrence: FR)
  Receive Date: 20200128
  Receipt Date: 20200128
  Transmission Date: 20200409
  Serious: Yes (Other)
  Sender: FDA-Public Use
  Company Number: FR-PFIZER INC-2020033402

PATIENT
  Age: 26 Year
  Sex: Male

DRUGS (2)
  1. RIVOTRIL [Suspect]
     Active Substance: CLONAZEPAM
     Dosage: 4 DF, 1X/DAY
     Route: 048
  2. LYRICA [Suspect]
     Active Substance: PREGABALIN
     Dosage: 1200 MG, 1X/DAY
     Route: 048

REACTIONS (3)
  - Drug diversion [Not Recovered/Not Resolved]
  - Overdose [Unknown]
  - Drug dependence [Not Recovered/Not Resolved]
